FAERS Safety Report 5020677-X (Version None)
Quarter: 2006Q2

REPORT INFORMATION
  Report Type: 
  Country: None (occurrence: None)
  Receive Date: 20060602
  Receipt Date: 20060512
  Transmission Date: 20061013
  Serious: Yes (Other)
  Sender: FDA-Public Use
  Company Number: US200605002900

PATIENT
  Age: 44 Year
  Sex: Male

DRUGS (4)
  1. STRATTERA [Suspect]
     Indication: ATTENTION DEFICIT/HYPERACTIVITY DISORDER
     Dosage: 80 MG, DAILY (1/D),
     Dates: start: 20040101
  2. DIURETICS [Concomitant]
  3. PREGABALIN (PREGABALIN) [Concomitant]
  4. FLUOXETINE HCL [Concomitant]

REACTIONS (6)
  - BLOOD PRESSURE INCREASED [None]
  - CATHETERISATION CARDIAC [None]
  - DIABETES MELLITUS [None]
  - HYPERHIDROSIS [None]
  - NEUROPATHY PERIPHERAL [None]
  - SOMNOLENCE [None]
